FAERS Safety Report 6550710-5 (Version None)
Quarter: 2010Q1

REPORT INFORMATION
  Report Type: 
  Country: None (occurrence: None)
  Receive Date: 20100125
  Receipt Date: 20100112
  Transmission Date: 20100710
  Serious: Yes (Other)
  Sender: FDA-Public Use
  Company Number: PHHY2010HR01489

PATIENT
  Sex: Male

DRUGS (5)
  1. SANDOSTATIN [Suspect]
     Indication: PANCREATITIS ACUTE
     Dosage: 0.1 MG, TID
     Route: 058
     Dates: start: 20091222
  2. TAZOCIN [Concomitant]
     Route: 048
  3. PEPTORAN [Concomitant]
     Route: 048
  4. CONCOR [Concomitant]
     Route: 048
  5. CREON [Concomitant]
     Route: 048

REACTIONS (5)
  - ALANINE AMINOTRANSFERASE INCREASED [None]
  - ASPARTATE AMINOTRANSFERASE INCREASED [None]
  - BLOOD CREATININE INCREASED [None]
  - C-REACTIVE PROTEIN INCREASED [None]
  - URTICARIA [None]
